FAERS Safety Report 6063332-X (Version None)
Quarter: 2009Q1

REPORT INFORMATION
  Report Type: 
  Country: None (occurrence: None)
  Receive Date: 20090203
  Receipt Date: 20090122
  Transmission Date: 20090719
  Serious: Yes (Other)
  Sender: FDA-Public Use
  Company Number: US-PFIZER INC-2009159820

PATIENT
  Sex: Male
  Weight: 86.182 kg

DRUGS (4)
  1. XALATAN [Suspect]
     Indication: GLAUCOMA
     Dosage: UNK
     Dates: start: 20080101
  2. OPHTHALMOLOGICALS [Interacting]
     Indication: CATARACT OPERATION
     Dates: start: 20081101
  3. PSYLLIUM HYDROPHILIC MUCILLOID [Concomitant]
     Dosage: UNK
  4. LEXAPRO [Concomitant]
     Dosage: UNK

REACTIONS (4)
  - ABNORMAL SENSATION IN EYE [None]
  - CATARACT OPERATION [None]
  - DRUG INTERACTION [None]
  - EYE IRRITATION [None]
